FAERS Safety Report 4485286-X (Version None)
Quarter: 2004Q4

REPORT INFORMATION
  Report Type: 
  Country: None (occurrence: None)
  Receive Date: 20041022
  Receipt Date: 20041022
  Transmission Date: 20050328
  Serious: Yes (Hospitalization)
  Sender: FDA-Public Use
  Company Number: None

PATIENT
  Age: 68 Year
  Sex: Female

DRUGS (1)
  1. PREDNISONE [Suspect]
     Dates: start: 20031002, end: 20040202

REACTIONS (3)
  - CONDITION AGGRAVATED [None]
  - GOUT [None]
  - HYPERGLYCAEMIA [None]
